FAERS Safety Report 17604569 (Version 1)
Quarter: 2020Q1

REPORT INFORMATION
  Report Type: Spontaneous
  Country: US (occurrence: US)
  Receive Date: 20200331
  Receipt Date: 20200331
  Transmission Date: 20200409
  Serious: No
  Sender: FDA-Public Use
  Company Number: US-AMGEN-USASP2020050994

PATIENT
  Sex: Male

DRUGS (1)
  1. MVASI [Suspect]
     Active Substance: BEVACIZUMAB-AWWB
     Indication: BRAIN NEOPLASM MALIGNANT
     Dosage: 800 MILLIGRAM, Q2WK
     Route: 065
     Dates: start: 20200106

REACTIONS (1)
  - Urinary tract infection [Unknown]
